FAERS Safety Report 9733931 (Version 3)
Quarter: 2014Q1

REPORT INFORMATION
  Report Type: Spontaneous
  Country: FR (occurrence: FR)
  Receive Date: 20131205
  Receipt Date: 20140220
  Transmission Date: 20141002
  Serious: Yes (Death, Life-Threatening, Hospitalization, Other)
  Sender: FDA-Public Use
  Company Number: FR-009507513-1311FRA012505

PATIENT
  Age: 50 Year
  Sex: Male
  Weight: 61 kg

DRUGS (11)
  1. ISENTRESS [Suspect]
     Indication: HIV INFECTION
     Dosage: 2 DF, UNKNOWN
     Route: 048
     Dates: start: 20131020, end: 20131118
  2. SOFOSBUVIR [Suspect]
     Indication: HEPATITIS C
     Dosage: 400 MG, QD
     Route: 048
     Dates: start: 20130916, end: 20131118
  3. DACLATASVIR [Suspect]
     Indication: HEPATITIS C
     Dosage: 60 MG, QD
     Route: 048
     Dates: start: 20131020, end: 20131118
  4. TRUVADA [Suspect]
     Indication: HIV INFECTION
     Dosage: UNK
     Route: 048
     Dates: end: 20131118
  5. EPOETIN [Concomitant]
     Indication: ANAEMIA
     Dosage: UNK
     Dates: end: 20131028
  6. CELLCEPT [Concomitant]
     Dosage: UNK
     Dates: end: 20131028
  7. NEORAL [Concomitant]
     Dosage: UNK
     Dates: end: 20131028
  8. ARIXTRA [Concomitant]
     Indication: HEPATIC VEIN THROMBOSIS
     Dosage: UNK
     Dates: start: 201211, end: 20131028
  9. NORFLOXACIN [Concomitant]
     Indication: INFECTION PROPHYLAXIS
     Dosage: UNK
     Dates: start: 201308, end: 20131028
  10. COPEGUS [Suspect]
     Indication: HEPATITIS C
     Dosage: 400 MG, UNKNOWN
     Route: 048
     Dates: start: 20130916, end: 20131020
  11. KALETRA [Concomitant]
     Dosage: UNK
     Dates: end: 20131020

REACTIONS (3)
  - Cardiac failure acute [Fatal]
  - Pulmonary arterial hypertension [Fatal]
  - Cardiomyopathy [Unknown]
